FAERS Safety Report 19588774 (Version 1)
Quarter: 2021Q3

REPORT INFORMATION
  Report Type: Spontaneous
  Country: JP (occurrence: JP)
  Receive Date: 20210721
  Receipt Date: 20210721
  Transmission Date: 20211014
  Serious: Yes (Other)
  Sender: FDA-Public Use
  Company Number: JP-PFIZER INC-2021847995

PATIENT
  Age: 6 Decade
  Sex: Female

DRUGS (1)
  1. SELARA [Suspect]
     Active Substance: EPLERENONE
     Dosage: 50 MG
     Route: 048

REACTIONS (3)
  - Hypokalaemia [Unknown]
  - Off label use [Unknown]
  - Contraindicated product administered [Unknown]
